FAERS Safety Report 4758269-X (Version None)
Quarter: 2005Q3

REPORT INFORMATION
  Report Type: 
  Country: None (occurrence: None)
  Receive Date: 20050826
  Receipt Date: 20050621
  Transmission Date: 20060218
  Serious: No
  Sender: FDA-Public Use
  Company Number: WAES 0506USA03385

PATIENT
  Age: 60 Year
  Sex: Male

DRUGS (3)
  1. ZETIA [Suspect]
     Indication: HYPERCHOLESTEROLAEMIA
     Dosage: 10 MG/DAILY/PO;  PO
     Route: 048
     Dates: start: 20050101, end: 20050101
  2. ZETIA [Suspect]
     Indication: HYPERCHOLESTEROLAEMIA
     Dosage: 10 MG/DAILY/PO;  PO
     Route: 048
     Dates: start: 20050101, end: 20050101
  3. LIPITOR [Concomitant]

REACTIONS (2)
  - EXERCISE CAPACITY DECREASED [None]
  - MYALGIA [None]
